FAERS Safety Report 21820485 (Version 1)
Quarter: 2023Q1

REPORT INFORMATION
  Report Type: Spontaneous
  Country: US (occurrence: US)
  Receive Date: 20230105
  Receipt Date: 20230105
  Transmission Date: 20230418
  Serious: Yes (Other)
  Sender: FDA-Public Use
  Company Number: US-SA-SAC20230103000286

PATIENT
  Sex: Female

DRUGS (2)
  1. AUBAGIO [Suspect]
     Active Substance: TERIFLUNOMIDE
     Indication: Multiple sclerosis
     Dosage: 14 MG QD
     Route: 048
     Dates: start: 20190424
  2. KEFLEX [Concomitant]
     Active Substance: CEPHALEXIN

REACTIONS (11)
  - Hip fracture [Unknown]
  - Fall [Unknown]
  - Depression [Unknown]
  - Back injury [Unknown]
  - Decreased interest [Unknown]
  - Muscle spasms [Unknown]
  - Limb injury [Unknown]
  - Head injury [Unknown]
  - Hepatic enzyme increased [Unknown]
  - Endodontic procedure [Unknown]
  - Artificial crown procedure [Unknown]

NARRATIVE: CASE EVENT DATE: 20221211
